FAERS Safety Report 5683557-2 (Version None)
Quarter: 2008Q1

REPORT INFORMATION
  Report Type: 
  Country: None (occurrence: None)
  Receive Date: 20080328
  Receipt Date: 20080318
  Transmission Date: 20080703
  Serious: Yes (Death)
  Sender: FDA-Public Use
  Company Number: GB-RANBAXY-2008RR-13896

PATIENT

DRUGS (5)
  1. IBUPROFEN TABLETS BP 200MG [Suspect]
     Indication: MUSCLE INJURY
  2. ADRENALINE [Concomitant]
     Dosage: 1 G, UNK
  3. NORADRENALINE [Concomitant]
  4. DOBUTAMINE HCL [Concomitant]
  5. MANNITOL [Concomitant]

REACTIONS (1)
  - HYPONATRAEMIC ENCEPHALOPATHY [None]
